FAERS Safety Report 13680865 (Version 1)
Quarter: 2017Q2

REPORT INFORMATION
  Report Type: Spontaneous
  Country: US (occurrence: US)
  Receive Date: 20170622
  Receipt Date: 20170622
  Transmission Date: 20170830
  Serious: Yes (Hospitalization)
  Sender: FDA-Public Use
  Company Number: None

PATIENT
  Age: 36 Year
  Sex: Male

DRUGS (12)
  1. JADENU [Suspect]
     Active Substance: DEFERASIROX
     Indication: HYPERTENSION
     Route: 048
     Dates: start: 20170526
  2. METOPROLOL. [Concomitant]
     Active Substance: METOPROLOL
  3. XARELTO [Concomitant]
     Active Substance: RIVAROXABAN
  4. ZOLPIDEM [Concomitant]
     Active Substance: ZOLPIDEM\ZOLPIDEM TARTRATE
  5. ASPIRIN. [Concomitant]
     Active Substance: ASPIRIN
  6. DILANTIN [Concomitant]
     Active Substance: PHENYTOIN
  7. FOLIC ACID. [Concomitant]
     Active Substance: FOLIC ACID
  8. HYDROMORPHONE [Concomitant]
     Active Substance: HYDROMORPHONE
  9. MORPHINE [Concomitant]
     Active Substance: MORPHINE
  10. VITAMIN D [Concomitant]
     Active Substance: CHOLECALCIFEROL
  11. POTASSIUM [Concomitant]
     Active Substance: POTASSIUM
  12. LISINOPRIL. [Concomitant]
     Active Substance: LISINOPRIL

REACTIONS (1)
  - Hospitalisation [None]

NARRATIVE: CASE EVENT DATE: 201705
